FAERS Safety Report 5320982-3 (Version None)
Quarter: 2007Q2

REPORT INFORMATION
  Report Type: 
  Country: None (occurrence: None)
  Receive Date: 20070510
  Receipt Date: 20070507
  Transmission Date: 20071010
  Serious: Yes (Death, Other)
  Sender: FDA-Public Use
  Company Number: PHEH2007US07028

PATIENT
  Age: 71 Year
  Sex: Male
  Weight: 82 kg

DRUGS (5)
  1. DIOVAN HCT [Suspect]
     Indication: HYPERTENSION
     Dosage: 320MG VAL/12.5MG HCT, QD
     Route: 048
     Dates: start: 20061207, end: 20070408
  2. TOPROL-XL [Concomitant]
     Indication: HYPERTENSION
     Dosage: 200MG, UNK
     Dates: start: 20060101
  3. PLAVIX [Concomitant]
     Indication: CORONARY ARTERY DISEASE
     Dosage: 75MG, UNK
     Dates: start: 20060101
  4. LIPITOR [Concomitant]
     Indication: HYPERLIPIDAEMIA
     Dosage: 10MG, UNK
     Dates: start: 20060101
  5. LISINOPRIL [Concomitant]
     Indication: HYPERTENSION
     Dosage: UNK, UNK

REACTIONS (5)
  - ACUTE MYOCARDIAL INFARCTION [None]
  - CHEST PAIN [None]
  - HIP ARTHROPLASTY [None]
  - HIP FRACTURE [None]
  - STENT PLACEMENT [None]
